FAERS Safety Report 9305532 (Version 1)
Quarter: 2013Q3

REPORT INFORMATION
  Report Type: Spontaneous
  Country: US (occurrence: None)
  Receive Date: 20130522
  Receipt Date: 20130522
  Transmission Date: 20140515
  Serious: Yes (Hospitalization)
  Sender: FDA-Public Use
  Company Number: None

PATIENT
  Age: 65 Year
  Sex: Male
  Weight: 83.4 kg

DRUGS (16)
  1. CARFILZOMIB [Suspect]
     Indication: PLASMA CELL MYELOMA
     Dosage: 45MG, ,INTRAVENOUS
     Route: 042
     Dates: start: 20121129, end: 20130208
  2. PANOBINOSTAT [Suspect]
     Indication: PLASMA CELL MYELOMA
     Dosage: 30 MG, , ORAL
     Route: 048
     Dates: start: 20121129, end: 20130211
  3. LEVAQUIN [Concomitant]
  4. DILAUDID [Concomitant]
  5. FENTANYL [Concomitant]
  6. ALBUTEROL [Concomitant]
  7. XANAX [Concomitant]
  8. LORTAB [Concomitant]
  9. FLOMAX [Concomitant]
  10. LOMOTIL [Concomitant]
  11. ACYCLOVIR [Concomitant]
  12. BENADRYL [Concomitant]
  13. RESTORIL [Concomitant]
  14. CLONIDINE HCL [Concomitant]
  15. NORVASC [Concomitant]
  16. MUCINEX [Concomitant]

REACTIONS (7)
  - Haemolytic uraemic syndrome [None]
  - Dehydration [None]
  - Diarrhoea [None]
  - Microangiopathic haemolytic anaemia [None]
  - Condition aggravated [None]
  - Renal failure [None]
  - Thrombotic thrombocytopenic purpura [None]
